FAERS Safety Report 4966103-8 (Version None)
Quarter: 2006Q2

REPORT INFORMATION
  Report Type: 
  Country: None (occurrence: None)
  Receive Date: 20060403
  Receipt Date: 20060320
  Transmission Date: 20061013
  Serious: Yes (Other)
  Sender: FDA-Public Use
  Company Number: 2006039290

PATIENT
  Age: 28 Year
  Sex: Male

DRUGS (1)
  1. VFEND [Suspect]
     Indication: CANDIDIASIS

REACTIONS (1)
  - CHOROIDAL DYSTROPHY [None]
